FAERS Safety Report 10905908 (Version 1)
Quarter: 2015Q1

REPORT INFORMATION
  Report Type: Spontaneous
  Country: US (occurrence: US)
  Receive Date: 20150311
  Receipt Date: 20150311
  Transmission Date: 20150721
  Serious: No
  Sender: FDA-Public Use
  Company Number: US-GLAXOSMITHKLINE-US2015024400

PATIENT
  Sex: Male

DRUGS (1)
  1. FLOVENT [Suspect]
     Active Substance: FLUTICASONE PROPIONATE
     Indication: PRODUCT USED FOR UNKNOWN INDICATION
     Dosage: UNK UNK, U
     Dates: start: 201502

REACTIONS (4)
  - Pharyngeal erythema [Unknown]
  - Abdominal discomfort [Unknown]
  - Rash [Unknown]
  - Nasal congestion [Unknown]

NARRATIVE: CASE EVENT DATE: 201502
